FAERS Safety Report 7824767-5 (Version None)
Quarter: 2011Q4

REPORT INFORMATION
  Report Type: 
  Country: None (occurrence: None)
  Receive Date: 20111019
  Receipt Date: 20110303
  Transmission Date: 20120403
  Serious: No
  Sender: FDA-Public Use
  Company Number: US-BRISTOL-MYERS SQUIBB COMPANY-15432362

PATIENT
  Age: 41 Year
  Sex: Female

DRUGS (1)
  1. AVALIDE [Suspect]
     Dosage: 1DF=150MG+12.5MG.BOTTLE IX30; 300 / 12.5 MG

REACTIONS (4)
  - PAIN [None]
  - URINE ODOUR ABNORMAL [None]
  - BACK PAIN [None]
  - ABDOMINAL DISCOMFORT [None]
